FAERS Safety Report 9483335 (Version 2)
Quarter: 2013Q4

REPORT INFORMATION
  Report Type: Spontaneous
  Country: FR (occurrence: FR)
  Receive Date: 20130828
  Receipt Date: 20131028
  Transmission Date: 20140711
  Serious: Yes (Hospitalization)
  Sender: FDA-Public Use
  Company Number: FR-ROCHE-1267262

PATIENT
  Age: 74 Year
  Sex: Female

DRUGS (3)
  1. MABTHERA [Suspect]
     Indication: PSORIASIS
     Route: 041
     Dates: start: 201204
  2. CHLORAMINOPHENE [Suspect]
     Indication: PSORIASIS
     Dosage: 2 MG
     Route: 048
     Dates: start: 201204
  3. METHOTREXATE [Suspect]
     Indication: PSORIASIS
     Route: 048
     Dates: start: 20120918

REACTIONS (1)
  - Basal cell carcinoma [Recovered/Resolved]
